FAERS Safety Report 4624413-8 (Version None)
Quarter: 2005Q1

REPORT INFORMATION
  Report Type: 
  Country: None (occurrence: None)
  Receive Date: 20050330
  Receipt Date: 20050330
  Transmission Date: 20050727
  Serious: Yes (Life-Threatening, Hospitalization)
  Sender: FDA-Public Use
  Company Number: None

PATIENT
  Age: 47 Year
  Weight: 85.8 kg

DRUGS (13)
  1. FLUDARABINE ATG 2250MGX2 022105-022205 [Suspect]
     Indication: CHRONIC LYMPHOCYTIC LEUKAEMIA
     Dosage: 85MG   QD   INTRAVENOU
     Route: 042
     Dates: start: 20050216, end: 20050220
  2. CYTOXAN [Suspect]
     Indication: CHRONIC LYMPHOCYTIC LEUKAEMIA
     Dosage: 1.87G   QD   INTRAVENOU
     Route: 042
     Dates: start: 20050221, end: 20050222
  3. ACYCLOVIR [Concomitant]
  4. CIPROFLOXACIN [Concomitant]
  5. VANCOMYCIN [Concomitant]
  6. ABELCET [Concomitant]
  7. HYDROCORTISONE [Concomitant]
  8. GLUTAMINE [Concomitant]
  9. CAROFATE [Concomitant]
  10. NEUPOGEN [Concomitant]
  11. ACTIGALL [Concomitant]
  12. CYCLOSPORINE [Concomitant]
  13. MAGNESIUM OXIDE [Concomitant]

REACTIONS (9)
  - BLOOD BILIRUBIN ABNORMAL [None]
  - EYE DISORDER [None]
  - FATIGUE [None]
  - GRAFT VERSUS HOST DISEASE [None]
  - HYPOXIA [None]
  - PLEURAL EFFUSION [None]
  - PNEUMONIA [None]
  - PYREXIA [None]
  - SKIN DISORDER [None]
